FAERS Safety Report 5752074-3 (Version None)
Quarter: 2008Q2

REPORT INFORMATION
  Report Type: 
  Country: None (occurrence: None)
  Receive Date: 20080527
  Receipt Date: 20080508
  Transmission Date: 20081010
  Serious: Yes (Hospitalization)
  Sender: FDA-Public Use
  Company Number: 2008AL004621

PATIENT
  Age: 66 Year
  Sex: Male
  Weight: 106.5953 kg

DRUGS (9)
  1. DIGOXIN [Suspect]
     Indication: CARDIAC DISORDER
     Dosage: .25 MG DAILY PO
     Route: 048
  2. LANOXIN [Concomitant]
  3. LASIX [Concomitant]
  4. IRON [Concomitant]
  5. METFORMIN HCL [Concomitant]
  6. METOPROLOL TARTRATE [Concomitant]
  7. VITAMINS [Concomitant]
  8. SERTRALINE HYDROCHLORIDE [Concomitant]
  9. KLOR-CON [Concomitant]

REACTIONS (4)
  - HEART RATE DECREASED [None]
  - HYPOTENSION [None]
  - NAUSEA [None]
  - VOMITING [None]
